FAERS Safety Report 15756411 (Version 1)
Quarter: 2018Q4

REPORT INFORMATION
  Report Type: Spontaneous
  Country: US (occurrence: US)
  Receive Date: 20181222
  Receipt Date: 20181222
  Transmission Date: 20190205
  Serious: No
  Sender: FDA-Public Use
  Company Number: None

PATIENT
  Age: 51 Year
  Sex: Female
  Weight: 90 kg

DRUGS (2)
  1. ICY HOT MEDICATED, XL [Suspect]
     Active Substance: MENTHOL
     Indication: NECK PAIN
     Dosage: ?          QUANTITY:1 PATCH(ES);?
     Route: 062
     Dates: start: 20181220, end: 20181221
  2. ICY HOT MEDICATED, XL [Suspect]
     Active Substance: MENTHOL
     Indication: MUSCULOSKELETAL PAIN
     Dosage: ?          QUANTITY:1 PATCH(ES);?
     Route: 062
     Dates: start: 20181220, end: 20181221

REACTIONS (3)
  - Pain [None]
  - Blister [None]
  - Rash [None]

NARRATIVE: CASE EVENT DATE: 20181220
